FAERS Safety Report 4429732-6 (Version None)
Quarter: 2004Q3

REPORT INFORMATION
  Report Type: 
  Country: None (occurrence: None)
  Receive Date: 20040820
  Receipt Date: 20040811
  Transmission Date: 20050211
  Serious: Yes (Hospitalization)
  Sender: FDA-Public Use
  Company Number: US-JNJFOC-20040301373

PATIENT
  Sex: Female

DRUGS (12)
  1. BLINDED; INFLIXIMAB, RECOMBINANT [Suspect]
     Route: 042
  2. PLACEBO [Suspect]
     Route: 042
  3. PREDNISONE [Concomitant]
     Indication: CHRONIC OBSTRUCTIVE AIRWAYS DISEASE EXACERBATED
     Route: 049
  4. PULMICORT [Concomitant]
     Route: 055
  5. DUONEB [Concomitant]
     Route: 055
  6. DUONEB [Concomitant]
     Route: 055
  7. ENALAPRIL MALEATE [Concomitant]
     Indication: HYPERTENSION
  8. ATROVENT [Concomitant]
     Route: 055
  9. ALBUTEROL [Concomitant]
     Route: 055
  10. COMBIVENT [Concomitant]
  11. COMBIVENT [Concomitant]
  12. VASOTEC [Concomitant]
     Indication: HYPERTENSION

REACTIONS (3)
  - CHEST PAIN [None]
  - CHRONIC OBSTRUCTIVE AIRWAYS DISEASE EXACERBATED [None]
  - TACHYCARDIA [None]
